FAERS Safety Report 10271976 (Version 3)
Quarter: 2014Q3

REPORT INFORMATION
  Report Type: Report from Study
  Country: DE (occurrence: DE)
  Receive Date: 20140702
  Receipt Date: 20140723
  Transmission Date: 20150326
  Serious: Yes (Hospitalization)
  Sender: FDA-Public Use
  Company Number: PHHO2009DE10223

PATIENT

DRUGS (5)
  1. MYFORTIC [Suspect]
     Active Substance: MYCOPHENOLATE SODIUM
     Dosage: 360 MG, BID
     Route: 048
     Dates: start: 20090724, end: 20090805
  2. MYFORTIC [Suspect]
     Active Substance: MYCOPHENOLATE SODIUM
     Indication: RENAL TRANSPLANT
     Dosage: 720 MG/360MG
     Route: 048
     Dates: end: 20090723
  3. SANDIMMUN OPTORAL [Suspect]
     Active Substance: CYCLOSPORINE
     Indication: RENAL TRANSPLANT
     Dosage: UNK
     Dates: start: 20090716
  4. NO TREATMENT RECEIVED [Suspect]
     Active Substance: UNSPECIFIED INGREDIENT
     Indication: RENAL TRANSPLANT
  5. PREDNISONE. [Suspect]
     Active Substance: PREDNISONE
     Indication: RENAL TRANSPLANT
     Dosage: 70 MG, QD

REACTIONS (9)
  - Complications of transplanted kidney [Recovered/Resolved with Sequelae]
  - Gastrointestinal injury [Recovered/Resolved with Sequelae]
  - Impaired healing [Recovered/Resolved]
  - Infection [Recovered/Resolved with Sequelae]
  - Abdominal abscess [Recovered/Resolved with Sequelae]
  - Peritonitis [Recovered/Resolved]
  - Incisional hernia [Recovered/Resolved with Sequelae]
  - Vomiting [Recovered/Resolved with Sequelae]
  - Nausea [Recovered/Resolved with Sequelae]

NARRATIVE: CASE EVENT DATE: 20090716
